FAERS Safety Report 9880856 (Version 1)
Quarter: 2014Q1

REPORT INFORMATION
  Report Type: Spontaneous
  Country: US (occurrence: US)
  Receive Date: 20140207
  Receipt Date: 20140207
  Transmission Date: 20141002
  Serious: No
  Sender: FDA-Public Use
  Company Number: US-PFIZER INC-2014033724

PATIENT
  Age: 65 Year
  Sex: Female
  Weight: 92.97 kg

DRUGS (3)
  1. XELJANZ [Suspect]
     Indication: RHEUMATOID ARTHRITIS
     Dosage: 5 MG, 2X/DAY
     Route: 048
     Dates: start: 201309
  2. MELOXICAM [Concomitant]
     Dosage: UNK
  3. PLAQUENIL [Concomitant]
     Dosage: 200 MG, UNK

REACTIONS (3)
  - Sinusitis [Unknown]
  - Nasopharyngitis [Unknown]
  - Ear disorder [Unknown]
